FAERS Safety Report 5750666-9 (Version None)
Quarter: 2008Q2

REPORT INFORMATION
  Report Type: 
  Country: None (occurrence: None)
  Receive Date: 20080528
  Receipt Date: 20080520
  Transmission Date: 20081010
  Serious: Yes (Hospitalization)
  Sender: FDA-Public Use
  Company Number: TR-AVENTIS-200814517GDDC

PATIENT
  Sex: Female
  Weight: 81 kg

DRUGS (4)
  1. LANTUS [Suspect]
     Indication: DIABETES MELLITUS
     Route: 058
     Dates: start: 20071112, end: 20080312
  2. LANTUS [Suspect]
     Route: 058
  3. AUTOPEN INSULIN INJECTION PEN [Suspect]
  4. ANTIHYPERTENSIVES [Concomitant]
     Indication: HYPERTENSION

REACTIONS (2)
  - DIABETIC COMA [None]
  - PHARMACEUTICAL PRODUCT COMPLAINT [None]
